FAERS Safety Report 4706996-2 (Version None)
Quarter: 2005Q3

REPORT INFORMATION
  Report Type: 
  Country: None (occurrence: None)
  Receive Date: 20050701
  Receipt Date: 20050623
  Transmission Date: 20060218
  Serious: Yes (Other)
  Sender: FDA-Public Use
  Company Number: 2005-06-1793

PATIENT

DRUGS (2)
  1. RIBAVIRIN [Suspect]
     Dosage: 1000 MG QD ORAL
     Route: 048
     Dates: end: 20050501
  2. INTERFERON INJECTABLE [Suspect]
     Dosage: 1000 MG QD ORAL
     Route: 048
     Dates: end: 20050501

REACTIONS (3)
  - BIPOLAR I DISORDER [None]
  - DRUG EXPOSURE DURING PREGNANCY [None]
  - SUICIDAL IDEATION [None]
